FAERS Safety Report 4743935-2 (Version None)
Quarter: 2005Q3

REPORT INFORMATION
  Report Type: 
  Country: None (occurrence: None)
  Receive Date: 20050812
  Receipt Date: 20050718
  Transmission Date: 20060218
  Serious: Yes (Hospitalization)
  Sender: FDA-Public Use
  Company Number: CA-ROCHE-411305

PATIENT
  Age: 61 Year
  Sex: Male
  Weight: 119 kg

DRUGS (6)
  1. XENICAL [Suspect]
     Indication: OBESITY
     Route: 048
     Dates: start: 20050218, end: 20050714
  2. CLOZAPINE [Concomitant]
     Route: 048
     Dates: start: 20050623
  3. OLANZAPINE [Concomitant]
  4. ATORVASTATIN CALCIUM [Concomitant]
     Route: 048
     Dates: start: 20050218
  5. HYDROCHLOROTHIAZIDE [Concomitant]
     Route: 048
     Dates: start: 20050318
  6. METFORMIN [Concomitant]
     Route: 048
     Dates: start: 20050314

REACTIONS (1)
  - HAEMOGLOBIN DECREASED [None]
